FAERS Safety Report 16512634 (Version 2)
Quarter: 2019Q3

REPORT INFORMATION
  Report Type: Report from Study
  Country: US (occurrence: US)
  Receive Date: 20190702
  Receipt Date: 20190723
  Transmission Date: 20191004
  Serious: Yes (Hospitalization, Other)
  Sender: FDA-Public Use
  Company Number: US-EMD SERONO-9102013

PATIENT
  Sex: Female

DRUGS (2)
  1. REBIF [Suspect]
     Active Substance: INTERFERON BETA-1A
     Indication: NEUROMYELITIS OPTICA SPECTRUM DISORDER
     Route: 058
     Dates: start: 20040127
  2. REBIF [Suspect]
     Active Substance: INTERFERON BETA-1A
     Dosage: REBIF PREFILLED SYRINGES
     Route: 058
     Dates: start: 201404, end: 201907

REACTIONS (6)
  - Tremor [Unknown]
  - Screaming [Unknown]
  - Product prescribing error [Unknown]
  - Neuromyelitis optica spectrum disorder [Unknown]
  - Osteonecrosis [Unknown]
  - Feeling abnormal [Unknown]
